FAERS Safety Report 24016027 (Version 1)
Quarter: 2024Q2

REPORT INFORMATION
  Report Type: Report from Study
  Country: ES (occurrence: None)
  Receive Date: 20240626
  Receipt Date: 20240626
  Transmission Date: 20240716
  Serious: Yes (Other)
  Sender: FDA-Public Use
  Company Number: 2024A141283

PATIENT

DRUGS (3)
  1. FULVESTRANT [Suspect]
     Active Substance: FULVESTRANT
     Indication: Breast cancer metastatic
     Route: 030
  2. RIBOCICLIB [Suspect]
     Active Substance: RIBOCICLIB
     Indication: Breast cancer metastatic
     Route: 048
  3. EXEMESTANE/EVEROLIMUS [Concomitant]

REACTIONS (5)
  - Malignant neoplasm progression [Unknown]
  - Activated PI3 kinase delta syndrome [Unknown]
  - Drug resistance [Unknown]
  - Gene mutation [Unknown]
  - K-ras gene mutation [Unknown]
